FAERS Safety Report 13255860 (Version 7)
Quarter: 2018Q1

REPORT INFORMATION
  Report Type: Spontaneous
  Country: PT (occurrence: PT)
  Receive Date: 20170221
  Receipt Date: 20180216
  Transmission Date: 20180508
  Serious: Yes (Other)
  Sender: FDA-Public Use
  Company Number: PT-BIOGEN-2017BI00358883

PATIENT
  Age: 41 Year
  Sex: Female

DRUGS (5)
  1. TECFIDERA [Suspect]
     Active Substance: DIMETHYL FUMARATE
     Dosage: WITH MORE GRADUAL ESCALATION OF THE DOSE
     Route: 048
  2. TECFIDERA [Suspect]
     Active Substance: DIMETHYL FUMARATE
     Dosage: EXP DATE: 05/2018
     Route: 048
     Dates: start: 20170117
  3. TECFIDERA [Suspect]
     Active Substance: DIMETHYL FUMARATE
     Indication: MULTIPLE SCLEROSIS
     Dosage: EXP DATE: 05/2018
     Route: 048
     Dates: start: 20170117
  4. TECFIDERA [Suspect]
     Active Substance: DIMETHYL FUMARATE
     Route: 048
  5. METHYLPREDNISOLONE. [Concomitant]
     Active Substance: METHYLPREDNISOLONE
     Indication: PRODUCT USED FOR UNKNOWN INDICATION
     Route: 065
     Dates: start: 20170116, end: 20170118

REACTIONS (9)
  - Nausea [Recovered/Resolved]
  - Oesophageal pain [Recovered/Resolved]
  - Rash pruritic [Recovered/Resolved]
  - Insomnia [Recovered/Resolved]
  - Arthralgia [Recovered/Resolved]
  - Vomiting [Recovered/Resolved]
  - Underdose [Not Recovered/Not Resolved]
  - Erythema [Recovered/Resolved]
  - Intestinal transit time abnormal [Recovered/Resolved]

NARRATIVE: CASE EVENT DATE: 20170117
